FAERS Safety Report 5369151-1 (Version None)
Quarter: 2007Q2

REPORT INFORMATION
  Report Type: 
  Country: None (occurrence: None)
  Receive Date: 20070625
  Receipt Date: 20070404
  Transmission Date: 20071010
  Serious: No
  Sender: FDA-Public Use
  Company Number: US-ASTRAZENECA-2007UW00374

PATIENT
  Age: 85 Year
  Sex: Female
  Weight: 59 kg

DRUGS (6)
  1. CRESTOR [Suspect]
     Indication: BLOOD CHOLESTEROL INCREASED
     Route: 048
     Dates: start: 20061201
  2. ASPIRIN [Concomitant]
  3. CALCIUM CHLORIDE [Concomitant]
  4. M.V.I. [Concomitant]
  5. VITAMIN [Concomitant]
  6. JOINT [Concomitant]

REACTIONS (5)
  - ABDOMINAL PAIN [None]
  - ALOPECIA [None]
  - BACK PAIN [None]
  - CONSTIPATION [None]
  - FATIGUE [None]
